FAERS Safety Report 7811709 (Version 15)
Quarter: 2016Q4

REPORT INFORMATION
  Report Type: Report from Study
  Country: DE (occurrence: DE)
  Receive Date: 20110214
  Receipt Date: 20161205
  Transmission Date: 20170207
  Serious: Yes (Death, Hospitalization, Other)
  Sender: FDA-Public Use
  Company Number: PHHO2011DE02336

PATIENT
  Age: 55 Year
  Sex: Female
  Weight: 60 kg

DRUGS (9)
  1. CISPLATIN. [Suspect]
     Active Substance: CISPLATIN
     Indication: MALIGNANT NEOPLASM PROGRESSION
     Dosage: UNK
     Dates: start: 20110323, end: 20110325
  2. ETOPOSIDE. [Suspect]
     Active Substance: ETOPOSIDE
     Indication: MALIGNANT NEOPLASM PROGRESSION
     Dosage: UNK
     Dates: start: 20110325, end: 20110325
  3. DICLOFENAC [Suspect]
     Active Substance: DICLOFENAC
     Dosage: UNK
     Dates: start: 20110201
  4. HYDROCORTISONE. [Suspect]
     Active Substance: HYDROCORTISONE
     Dosage: 3 MG, UNK
     Route: 048
     Dates: start: 20081215
  5. ASTONIN-H [Concomitant]
  6. TRAMADOL ^GEA^ [Concomitant]
  7. MORPHINE [Suspect]
     Active Substance: MORPHINE
  8. ZOLEDRONATE [Concomitant]
     Active Substance: ZOLEDRONIC ACID
     Indication: METASTASES TO BONE
     Dosage: UNK
  9. PASIREOTIDE [Suspect]
     Active Substance: PASIREOTIDE
     Indication: NEUROENDOCRINE TUMOUR
     Dosage: 60 UNK, UNK
     Route: 030
     Dates: start: 20100615, end: 20110126

REACTIONS (13)
  - Disturbance in attention [Fatal]
  - Malignant neoplasm progression [Fatal]
  - Nausea [Fatal]
  - Hyponatraemia [Fatal]
  - Electrolyte imbalance [Recovered/Resolved]
  - Back pain [Fatal]
  - Neutropenic sepsis [Fatal]
  - Adrenocortical insufficiency acute [Recovered/Resolved]
  - Thrombocytopenia [Fatal]
  - Vomiting [Fatal]
  - Metastasis [Fatal]
  - Pancytopenia [Fatal]
  - Horner^s syndrome [Fatal]

NARRATIVE: CASE EVENT DATE: 201101
